FAERS Safety Report 6705274-X (Version None)
Quarter: 2010Q2

REPORT INFORMATION
  Report Type: 
  Country: None (occurrence: None)
  Receive Date: 20100430
  Receipt Date: 20100426
  Transmission Date: 20101027
  Serious: Yes (Hospitalization)
  Sender: FDA-Public Use
  Company Number: RU-ROCHE-699566

PATIENT
  Age: 35 Year
  Sex: Male
  Weight: 62 kg

DRUGS (2)
  1. PEGASYS [Suspect]
     Route: 058
     Dates: start: 20091217, end: 20100401
  2. RIBAVIRIN [Concomitant]
     Dosage: FREQUENCY: DAILY
     Route: 048
     Dates: start: 20091217, end: 20100401

REACTIONS (3)
  - DIABETES MELLITUS [None]
  - HYPERGLYCAEMIA [None]
  - KETOACIDOSIS [None]
